FAERS Safety Report 9805016 (Version 3)
Quarter: 2014Q1

REPORT INFORMATION
  Report Type: Report from Study
  Country: CA (occurrence: CA)
  Receive Date: 20140109
  Receipt Date: 20140116
  Transmission Date: 20141002
  Serious: Yes (Other)
  Sender: FDA-Public Use
  Company Number: CA-ROCHE-1289419

PATIENT
  Age: 54 Year
  Sex: Male
  Weight: 79 kg

DRUGS (11)
  1. AVASTIN [Suspect]
     Indication: GLIOBLASTOMA
     Route: 042
     Dates: start: 20131010
  2. SOLU-MEDROL [Suspect]
     Indication: PRODUCT USED FOR UNKNOWN INDICATION
     Route: 042
     Dates: start: 20131010
  3. TYLENOL [Concomitant]
     Route: 048
     Dates: start: 20131010
  4. TYLENOL [Concomitant]
     Route: 048
     Dates: start: 20131205
  5. BENADRYL (CANADA) [Concomitant]
     Route: 048
     Dates: start: 20131010
  6. TEMODAL [Concomitant]
     Dosage: (FIRST DOSE ABOUT 2 YEARS AGO; LAST DOSE TONIGHT)
     Route: 065
     Dates: start: 2011, end: 2013
  7. DOMPERIDONE [Concomitant]
     Route: 065
  8. PANTOPRAZOLE [Concomitant]
     Route: 065
  9. ONDANSETRON [Concomitant]
     Dosage: 1 HR. PRIOR TO TEMODAL
     Route: 065
  10. LOMUSTINE [Concomitant]
     Dosage: 2 TABLETS
     Route: 048
     Dates: start: 20131031
  11. ASA [Concomitant]

REACTIONS (12)
  - Pain [Recovered/Resolved]
  - Drug ineffective [Unknown]
  - Fatigue [Unknown]
  - Dysgeusia [Not Recovered/Not Resolved]
  - Somnolence [Recovering/Resolving]
  - Fatigue [Recovering/Resolving]
  - Hypoaesthesia [Unknown]
  - Headache [Recovering/Resolving]
  - Back pain [Unknown]
  - Abdominal pain [Not Recovered/Not Resolved]
  - Dyspnoea [Recovered/Resolved]
  - Disease progression [Unknown]
